FAERS Safety Report 17786452 (Version 1)
Quarter: 2020Q2

REPORT INFORMATION
  Report Type: Spontaneous
  Country: GB (occurrence: GB)
  Receive Date: 20200514
  Receipt Date: 20200514
  Transmission Date: 20200714
  Serious: Yes (Congenital Anomaly, Other)
  Sender: FDA-Public Use
  Company Number: GB-MICRO LABS LIMITED-ML2020-01536

PATIENT
  Sex: Male

DRUGS (2)
  1. LEVETIRACETAM. [Suspect]
     Active Substance: LEVETIRACETAM
  2. VALPROATE [Suspect]
     Active Substance: VALPROIC ACID

REACTIONS (5)
  - Foetal anticonvulsant syndrome [Unknown]
  - Seizure [Unknown]
  - Foetal exposure during pregnancy [Unknown]
  - Cognitive disorder [Unknown]
  - Foetal growth restriction [Unknown]
